FAERS Safety Report 7440831-7 (Version None)
Quarter: 2011Q2

REPORT INFORMATION
  Report Type: 
  Country: None (occurrence: None)
  Receive Date: 20110427
  Receipt Date: 20110413
  Transmission Date: 20111010
  Serious: Yes (Other)
  Sender: FDA-Public Use
  Company Number: JP-BAYER-2011-030439

PATIENT
  Age: 72 Year
  Sex: Female

DRUGS (8)
  1. GASTER [Concomitant]
     Dosage: DAILY DOSE 10 MG
     Route: 048
  2. AMLODIN [Concomitant]
     Dosage: DAILY DOSE 2.5 MG
     Route: 048
  3. TELMISARTAN [Suspect]
     Dosage: DAILY DOSE 40 MG
     Route: 048
  4. ACETYLSALICYLIC ACID SRT [Suspect]
     Dosage: DAILY DOSE 100 MG
     Route: 048
  5. ALOSITOL [Concomitant]
     Dosage: DAILY DOSE 100 MG
     Route: 048
  6. SELOKEN [Concomitant]
     Dosage: DAILY DOSE 20 MG
     Route: 048
  7. LIPITOR [Concomitant]
     Route: 048
  8. LENDORMIN [Concomitant]
     Dosage: DAILY DOSE .25 MG
     Route: 048

REACTIONS (1)
  - ANGIOEDEMA [None]
